FAERS Safety Report 8614492-5 (Version None)
Quarter: 2012Q3

REPORT INFORMATION
  Report Type: 
  Country: None (occurrence: None)
  Receive Date: 20120823
  Receipt Date: 20120816
  Transmission Date: 20120928
  Serious: Yes (Hospitalization)
  Sender: FDA-Public Use
  Company Number: PHEH2011US02585

PATIENT
  Sex: Male

DRUGS (2)
  1. NEORAL [Suspect]
     Dosage: 100 MG, BID
     Route: 048
  2. NEORAL [Suspect]
     Indication: RENAL TRANSPLANT
     Dosage: 125 MG (MORNING) + 150 MG (EVENING)
     Route: 048

REACTIONS (4)
  - ARTHRITIS INFECTIVE [None]
  - HIP FRACTURE [None]
  - FALL [None]
  - PERIPHERAL VASCULAR DISORDER [None]
